FAERS Safety Report 9013968 (Version 1)
Quarter: 2013Q1

REPORT INFORMATION
  Report Type: Spontaneous
  Country: FR (occurrence: FR)
  Receive Date: 20130115
  Receipt Date: 20130115
  Transmission Date: 20140127
  Serious: Yes (Death, Hospitalization)
  Sender: FDA-Public Use
  Company Number: FR-JNJFOC-20130100846

PATIENT
  Age: 73 None
  Sex: Male

DRUGS (1)
  1. ZYTIGA [Suspect]
     Indication: PROSTATE CANCER
     Route: 048
     Dates: start: 20120604, end: 20120813

REACTIONS (8)
  - Death [Fatal]
  - Haematuria [Recovered/Resolved]
  - Thrombosis [Recovered/Resolved]
  - Weight decreased [Unknown]
  - Disturbance in attention [Unknown]
  - Somnolence [Unknown]
  - Disease progression [Unknown]
  - Confusional state [Unknown]
